FAERS Safety Report 4469261-7 (Version None)
Quarter: 2004Q4

REPORT INFORMATION
  Report Type: 
  Country: None (occurrence: None)
  Receive Date: 20041006
  Receipt Date: 20040920
  Transmission Date: 20050328
  Serious: Yes (Death)
  Sender: FDA-Public Use
  Company Number: 2004-DE-04966UP

PATIENT
  Age: 74 Year
  Sex: Male

DRUGS (1)
  1. MIRAPEX [Suspect]
     Indication: PARKINSON'S DISEASE
     Dosage: 0.125 MG (NR, 1 IN 1 D), PO
     Route: 048
     Dates: start: 19990101, end: 20040801

REACTIONS (1)
  - DEATH [None]
